FAERS Safety Report 20969880 (Version 1)
Quarter: 2022Q2

REPORT INFORMATION
  Report Type: Spontaneous
  Country: US (occurrence: US)
  Receive Date: 20220616
  Receipt Date: 20220616
  Transmission Date: 20220721
  Serious: No
  Sender: FDA-Public Use
  Company Number: US-SANOFI-01128358

PATIENT
  Sex: Female

DRUGS (1)
  1. ALLEGRA ALLERGY [Suspect]
     Active Substance: FEXOFENADINE HYDROCHLORIDE
     Indication: Urticaria chronic
     Dosage: 1 180MG PILL IN THE MORNING, 1 90MG PILL IN THE AFTERNOON AND 1 180MG PILL AT NIGHT

REACTIONS (1)
  - Product use issue [Unknown]
